FAERS Safety Report 5006830-X (Version None)
Quarter: 2006Q1

REPORT INFORMATION
  Report Type: 
  Country: None (occurrence: None)
  Receive Date: 20060324
  Receipt Date: 20050512
  Transmission Date: 20060701
  Serious: Yes (Congenital Anomaly)
  Sender: FDA-Public Use
  Company Number: 05P-163-0300741-00

PATIENT

DRUGS (1)
  1. VALPROATE SODIUM [Suspect]

REACTIONS (4)
  - CONGENITAL ANOMALY [None]
  - FACIAL DYSMORPHISM [None]
  - HYPOSPADIAS [None]
  - PATENT DUCTUS ARTERIOSUS [None]
